FAERS Safety Report 9779474 (Version 1)
Quarter: 2013Q4

REPORT INFORMATION
  Report Type: Spontaneous
  Country: US (occurrence: US)
  Receive Date: 20131223
  Receipt Date: 20131223
  Transmission Date: 20140711
  Serious: Yes (Hospitalization, Other)
  Sender: FDA-Public Use
  Company Number: US-B.I. PHARMACEUTICALS,INC./RIDGEFIELD-2013-BI-42561BP

PATIENT
  Sex: Female
  Weight: 100 kg

DRUGS (24)
  1. AGGRENOX [Suspect]
     Indication: CEREBROVASCULAR ACCIDENT PROPHYLAXIS
     Dosage: STRENGTH: 25 MG / 200 MG; DAILY DOSE: 25 MG / 200 MG
     Route: 048
     Dates: start: 2006
  2. COMBIVENT [Suspect]
     Indication: CHRONIC OBSTRUCTIVE PULMONARY DISEASE
     Dosage: STRENGTH: 18 MCG / 103 MCG; DAILY DOSE: 144 MCG / 824 MCG
     Route: 055
     Dates: start: 1996, end: 201310
  3. DETROL LA [Concomitant]
     Indication: URINARY INCONTINENCE
     Dosage: 5 MG
     Route: 048
  4. MIRALAX [Concomitant]
     Indication: CONSTIPATION
     Route: 048
  5. POTASSIUM [Concomitant]
     Dosage: 10 MEQ
     Route: 048
  6. DIABETA [Concomitant]
     Indication: DIABETES MELLITUS
     Dosage: 10 MG
     Route: 048
  7. MILES MIXTURE-SWISH AND SWALLOW [Concomitant]
     Indication: OESOPHAGEAL PAIN
     Dosage: 60 ML
     Route: 048
  8. HYDROCODONE ACETAMINOPHEN [Concomitant]
     Indication: PAIN
     Dosage: STRENGTH: 7.5 MG / 325 MG; DAILY DOSE: 30 MG / 1300 MG
     Route: 048
  9. RANITIDINE-PRESCRIPTION [Concomitant]
     Indication: DYSPEPSIA
     Dosage: 150 MG
     Route: 048
  10. LEXAPRO [Concomitant]
     Indication: DEPRESSION
     Dosage: 20 MG
     Route: 048
  11. VITAMIN B COMPLEX [Concomitant]
     Dosage: 1 ANZ
     Route: 048
  12. AMBIEN [Concomitant]
     Indication: INSOMNIA
     Dosage: 10 MG
     Route: 048
  13. COUMADIN [Concomitant]
     Indication: THROMBOSIS PROPHYLAXIS
     Dosage: 5 MG
     Route: 048
  14. OXYCODONE [Concomitant]
     Indication: PAIN
     Route: 048
  15. NEURONTIN [Concomitant]
     Indication: FIBROMYALGIA
     Dosage: 1200 MG
     Route: 048
  16. ZOCOR [Concomitant]
     Indication: BLOOD CHOLESTEROL INCREASED
     Dosage: 40 MG
     Route: 048
  17. VITAMIN D [Concomitant]
     Indication: VITAMIN D DEFICIENCY
     Dosage: 1785.7143 U
     Route: 048
  18. LASIX [Concomitant]
     Indication: OEDEMA PERIPHERAL
     Dosage: 10 MG
     Route: 048
  19. HYDOCORTISONE CREAM 1% [Concomitant]
     Indication: ERYTHEMA
     Route: 061
  20. SYNTHROID [Concomitant]
     Indication: HYPOTHYROIDISM
     Dosage: 75 MCG
     Route: 048
  21. CLARITIN [Concomitant]
     Indication: HYPERSENSITIVITY
     Dosage: 1 ANZ
     Route: 048
  22. SINEMET [Concomitant]
     Indication: PARKINSON^S DISEASE
     Dosage: STRENGTH: 25-100; DAILY DOSE: 75-300
     Route: 048
  23. OXYGEN [Concomitant]
     Dosage: 3L AT BEDTIME.
  24. COMBIVENT RESPIMAT [Concomitant]
     Indication: CHRONIC OBSTRUCTIVE PULMONARY DISEASE
     Route: 055
     Dates: start: 201310

REACTIONS (3)
  - Lung adenocarcinoma [Recovered/Resolved]
  - Pneumothorax [Recovered/Resolved]
  - Lung carcinoma cell type unspecified recurrent [Not Recovered/Not Resolved]
